FAERS Safety Report 11254377 (Version 2)
Quarter: 2015Q3

REPORT INFORMATION
  Report Type: Spontaneous
  Country: JP (occurrence: JP)
  Receive Date: 20150709
  Receipt Date: 20150714
  Transmission Date: 20151125
  Serious: Yes (Other)
  Sender: FDA-Public Use
  Company Number: JP-JNJFOC-20150702411

PATIENT
  Age: 53 Year
  Sex: Female

DRUGS (1)
  1. STELARA [Suspect]
     Active Substance: USTEKINUMAB
     Indication: PSORIASIS
     Dosage: RECEIVING USTEKINUMAB FOR APPROXIMATELY 3 YEARS
     Route: 058

REACTIONS (1)
  - Glioma [Unknown]
